FAERS Safety Report 13573912 (Version 3)
Quarter: 2018Q1

REPORT INFORMATION
  Report Type: Report from Study
  Country: BE (occurrence: BE)
  Receive Date: 20170523
  Receipt Date: 20180222
  Transmission Date: 20180508
  Serious: Yes (Hospitalization)
  Sender: FDA-Public Use
  Company Number: PHHY2017BE042485

PATIENT
  Age: 58 Year
  Sex: Female
  Weight: 65 kg

DRUGS (9)
  1. INNOHEP [Concomitant]
     Active Substance: TINZAPARIN SODIUM
     Indication: PULMONARY EMBOLISM
  2. DABRAFENIB [Suspect]
     Active Substance: DABRAFENIB
     Indication: NON-SMALL CELL LUNG CANCER
     Dosage: 150 MG, BID
     Route: 048
     Dates: start: 20170126, end: 20170305
  3. DABRAFENIB [Suspect]
     Active Substance: DABRAFENIB
     Dosage: UNK, BID
     Route: 048
     Dates: start: 20170421
  4. DABRAFENIB [Suspect]
     Active Substance: DABRAFENIB
     Dosage: 75 MG, BID
     Route: 048
     Dates: start: 20170504, end: 20170507
  5. INNOHEP [Concomitant]
     Active Substance: TINZAPARIN SODIUM
     Indication: COAGULOPATHY
     Dosage: 10000 U, UNK
     Route: 065
     Dates: start: 201612
  6. DABRAFENIB [Suspect]
     Active Substance: DABRAFENIB
     Dosage: UNK, BID
     Route: 048
     Dates: end: 20170522
  7. MEKINIST [Suspect]
     Active Substance: TRAMETINIB DIMETHYL SULFOXIDE
     Indication: NON-SMALL CELL LUNG CANCER
     Dosage: 2 MG, QD
     Route: 048
     Dates: start: 20170126, end: 20170305
  8. MEKINIST [Suspect]
     Active Substance: TRAMETINIB DIMETHYL SULFOXIDE
     Dosage: UNK, BID
     Route: 048
     Dates: start: 20170421, end: 20170522
  9. PARACETAMOL [Concomitant]
     Active Substance: ACETAMINOPHEN
     Indication: PAIN
     Dosage: 4 G, UNK
     Route: 065
     Dates: start: 201612

REACTIONS (16)
  - Hepatic enzyme increased [Recovered/Resolved]
  - Malaise [Recovering/Resolving]
  - Hypovolaemic shock [Recovered/Resolved]
  - Vomiting [Recovering/Resolving]
  - Muscle haemorrhage [Recovered/Resolved]
  - Hypotension [Unknown]
  - Pain in extremity [Recovered/Resolved]
  - Influenza like illness [Recovered/Resolved]
  - Inflammation [Unknown]
  - Chills [Unknown]
  - Gamma-glutamyltransferase increased [Unknown]
  - Hyperpyrexia [Recovered/Resolved]
  - Blood alkaline phosphatase increased [Unknown]
  - Toxicity to various agents [Unknown]
  - Asthenia [Not Recovered/Not Resolved]
  - Hyperpyrexia [Recovered/Resolved]

NARRATIVE: CASE EVENT DATE: 201703
